FAERS Safety Report 14477707 (Version 1)
Quarter: 2018Q1

REPORT INFORMATION
  Report Type: Report from Study
  Country: US (occurrence: US)
  Receive Date: 20180201
  Receipt Date: 20180201
  Transmission Date: 20180509
  Serious: No
  Sender: FDA-Public Use
  Company Number: US-EXELIXIS-CABO-17009646

PATIENT
  Sex: Male

DRUGS (12)
  1. FINASTERIDE. [Concomitant]
     Active Substance: FINASTERIDE
  2. CABOMETYX [Suspect]
     Active Substance: CABOZANTINIB S-MALATE
     Dosage: 20 MG, QOD
     Route: 048
     Dates: start: 20171230
  3. FLOMAX [Concomitant]
     Active Substance: TAMSULOSIN HYDROCHLORIDE
  4. ZOFRAN [Concomitant]
     Active Substance: ONDANSETRON HYDROCHLORIDE
  5. HYDROCODONE [Concomitant]
     Active Substance: HYDROCODONE
  6. METOPROLOL. [Concomitant]
     Active Substance: METOPROLOL
  7. CABOMETYX [Suspect]
     Active Substance: CABOZANTINIB S-MALATE
     Indication: RENAL CANCER
     Dosage: 40 MG, QD
     Route: 048
     Dates: start: 20170607, end: 20170717
  8. NEURONTIN [Concomitant]
     Active Substance: GABAPENTIN
  9. OXYCONTIN [Concomitant]
     Active Substance: OXYCODONE HYDROCHLORIDE
  10. CABOMETYX [Suspect]
     Active Substance: CABOZANTINIB S-MALATE
     Indication: METASTASES TO BONE
     Dosage: 20 MG, QD
     Route: 048
  11. CALCIUM [Concomitant]
     Active Substance: CALCIUM
  12. VITAMIN B12 [Concomitant]
     Active Substance: CYANOCOBALAMIN

REACTIONS (13)
  - Mouth swelling [Unknown]
  - Oral pain [Unknown]
  - Pain [Unknown]
  - Pharyngeal oedema [Unknown]
  - Stomatitis [Not Recovered/Not Resolved]
  - Fatigue [Unknown]
  - Erythema [Unknown]
  - Diarrhoea [Recovering/Resolving]
  - Visual impairment [Recovering/Resolving]
  - Balance disorder [Recovering/Resolving]
  - Skin ulcer [Unknown]
  - Lip swelling [Unknown]
  - Malaise [Unknown]
